FAERS Safety Report 20491788 (Version 2)
Quarter: 2022Q1

REPORT INFORMATION
  Report Type: Report from Study
  Country: IN (occurrence: None)
  Receive Date: 20220218
  Receipt Date: 20220222
  Transmission Date: 20220423
  Serious: Yes (Death, Hospitalization)
  Sender: FDA-Public Use
  Company Number: IN-Eisai Pharmaceuticals India Pvt. Ltd.-EC-2022-108727

PATIENT
  Age: 62 Year
  Sex: Male

DRUGS (1)
  1. LENVIMA [Suspect]
     Active Substance: LENVATINIB
     Indication: Hepatocellular carcinoma
     Route: 048
     Dates: start: 20211106, end: 202201

REACTIONS (3)
  - Nephropathy [Fatal]
  - Asthenia [Not Recovered/Not Resolved]
  - Coagulopathy [Fatal]

NARRATIVE: CASE EVENT DATE: 20220101
